FAERS Safety Report 23137882 (Version 1)
Quarter: 2023Q4

REPORT INFORMATION
  Report Type: Spontaneous
  Country: US (occurrence: US)
  Receive Date: 20231102
  Receipt Date: 20231102
  Transmission Date: 20240110
  Serious: No
  Sender: FDA-Public Use
  Company Number: US-JNJFOC-20231066062

PATIENT
  Age: 53 Year
  Sex: Female
  Weight: 89 kg

DRUGS (11)
  1. CONCERTA [Suspect]
     Active Substance: METHYLPHENIDATE HYDROCHLORIDE
     Indication: Product used for unknown indication
     Route: 065
  2. ADDERALL [Suspect]
     Active Substance: AMPHETAMINE ASPARTATE\AMPHETAMINE SULFATE\DEXTROAMPHETAMINE SACCHARATE\DEXTROAMPHETAMINE SULFATE
     Indication: Attention deficit hyperactivity disorder
     Route: 065
  3. VYVANSE [Suspect]
     Active Substance: LISDEXAMFETAMINE DIMESYLATE
     Indication: Attention deficit hyperactivity disorder
     Route: 065
  4. PRAVASTATIN [Concomitant]
     Active Substance: PRAVASTATIN
  5. WELLBUTRIN [Concomitant]
     Active Substance: BUPROPION HYDROCHLORIDE
  6. METFORMIN [Concomitant]
     Active Substance: METFORMIN HYDROCHLORIDE
  7. LEVOTHYROXINE [Concomitant]
     Active Substance: LEVOTHYROXINE
  8. INSULIN NOS [Concomitant]
     Active Substance: INSULIN NOS
  9. EMGALITY [Concomitant]
     Active Substance: GALCANEZUMAB-GNLM
  10. ALLOPURINOL [Concomitant]
     Active Substance: ALLOPURINOL
  11. HERBALS\TURMERIC [Concomitant]
     Active Substance: HERBALS\TURMERIC

REACTIONS (8)
  - Frustration tolerance decreased [Unknown]
  - Disturbance in attention [Unknown]
  - Product availability issue [Unknown]
  - Fatigue [Unknown]
  - Feeling jittery [Unknown]
  - Insomnia [Unknown]
  - Tremor [Unknown]
  - Product use issue [Unknown]
